FAERS Safety Report 4523707-4 (Version None)
Quarter: 2004Q4

REPORT INFORMATION
  Report Type: 
  Country: None (occurrence: None)
  Receive Date: 20041210
  Receipt Date: 20041202
  Transmission Date: 20050328
  Serious: Yes (Other)
  Sender: FDA-Public Use
  Company Number: GB-GLAXOSMITHKLINE-B0359033A

PATIENT
  Age: 45 Year
  Sex: Female

DRUGS (4)
  1. ZYBAN [Suspect]
     Route: 048
     Dates: start: 20041019, end: 20041104
  2. SEREVENT [Concomitant]
     Indication: ASTHMA
     Dosage: 50MCG TWICE PER DAY
  3. BECLOMETHASONE DIPROPIONATE [Concomitant]
     Indication: ASTHMA
     Dosage: 400MCG TWICE PER DAY
  4. ALBUTEROL [Concomitant]
     Indication: ASTHMA
     Dosage: 200MCG AS REQUIRED

REACTIONS (4)
  - DEPRESSIVE SYMPTOM [None]
  - EPISTAXIS [None]
  - MALAISE [None]
  - TEARFULNESS [None]
